FAERS Safety Report 5019545-9 (Version None)
Quarter: 2006Q2

REPORT INFORMATION
  Report Type: 
  Country: None (occurrence: None)
  Receive Date: 20060601
  Receipt Date: 20060523
  Transmission Date: 20061013
  Serious: Yes (Other)
  Sender: FDA-Public Use
  Company Number: 2006066843

PATIENT
  Age: 25 Year
  Sex: Male
  Weight: 68.0396 kg

DRUGS (2)
  1. UNISOM [Suspect]
     Indication: SUICIDE ATTEMPT
     Dosage: 18 SLEEPGELSONE TIME, ORAL
     Route: 048
     Dates: start: 20060522, end: 20060522
  2. ETHANOL (ETHANOL) [Suspect]
     Indication: SUICIDE ATTEMPT

REACTIONS (2)
  - INCORRECT DOSE ADMINISTERED [None]
  - INTENTIONAL DRUG MISUSE [None]
